FAERS Safety Report 4686516-1 (Version None)
Quarter: 2005Q2

REPORT INFORMATION
  Report Type: 
  Country: None (occurrence: None)
  Receive Date: 20050609
  Receipt Date: 20050511
  Transmission Date: 20051028
  Serious: Yes (Other)
  Sender: FDA-Public Use
  Company Number: PHBS2005ES06746

PATIENT
  Age: 61 Year
  Sex: Female

DRUGS (5)
  1. GLEEVEC [Suspect]
     Indication: CHRONIC MYELOID LEUKAEMIA
     Dosage: 400 MG/D
     Route: 048
     Dates: start: 20020501, end: 20050429
  2. INSULIN [Concomitant]
  3. ASTUDAL [Concomitant]
  4. SALIDUR [Concomitant]
  5. DINAVAR [Concomitant]

REACTIONS (3)
  - NECROTISING PANNICULITIS [None]
  - PAIN [None]
  - RASH MACULAR [None]
